FAERS Safety Report 25164805 (Version 4)
Quarter: 2025Q2

REPORT INFORMATION
  Report Type: Spontaneous
  Country: US (occurrence: US)
  Receive Date: 20250406
  Receipt Date: 20250630
  Transmission Date: 20250717
  Serious: No
  Sender: SANOFI AVENTIS
  Company Number: US-SA-2025SA096673

PATIENT
  Age: 78 Year
  Sex: Female

DRUGS (7)
  1. DUPIXENT [Suspect]
     Active Substance: DUPILUMAB
     Indication: Asthma
     Route: 058
     Dates: start: 20250225, end: 20250225
  2. DUPIXENT [Suspect]
     Active Substance: DUPILUMAB
     Indication: Chronic obstructive pulmonary disease
     Dosage: 300 MG, QOW
     Route: 058
     Dates: start: 202503
  3. LASIX [Suspect]
     Active Substance: FUROSEMIDE
     Dates: end: 2025
  4. ELIQUIS [Concomitant]
     Active Substance: APIXABAN
  5. BREZTRI [Concomitant]
     Active Substance: BUDESONIDE\FORMOTEROL\GLYCOPYRROLATE
  6. TORSEMIDE [Concomitant]
     Active Substance: TORSEMIDE
     Dates: start: 202505
  7. PREDNISONE [Concomitant]
     Active Substance: PREDNISONE

REACTIONS (7)
  - Chest discomfort [Recovered/Resolved]
  - Chest pain [Unknown]
  - Influenza like illness [Unknown]
  - Peripheral swelling [Unknown]
  - Condition aggravated [Unknown]
  - Nasopharyngitis [Recovering/Resolving]
  - Chronic obstructive pulmonary disease [Recovering/Resolving]

NARRATIVE: CASE EVENT DATE: 20250101
